FAERS Safety Report 8647105 (Version 8)
Quarter: 2014Q1

REPORT INFORMATION
  Report Type: Report from Study
  Country: US (occurrence: US)
  Receive Date: 20120703
  Receipt Date: 20140212
  Transmission Date: 20141002
  Serious: Yes (Death, Hospitalization, Other)
  Sender: FDA-Public Use
  Company Number: PHHY2012US056329

PATIENT
  Age: 43 Year
  Sex: Male
  Weight: 66.21 kg

DRUGS (31)
  1. ICL670A [Suspect]
     Indication: SICKLE CELL ANAEMIA
     Dosage: 21 MG/KG (1500 MG, QD)
     Route: 048
     Dates: start: 20070721
  2. ICL670A [Suspect]
     Dosage: UNK UKN, UNK
     Dates: start: 20110322
  3. KLONOPIN [Concomitant]
     Indication: INSOMNIA
     Dosage: 0.5 MG, QD
     Route: 048
     Dates: start: 20040224, end: 20101118
  4. KADIAN [Concomitant]
     Indication: PAIN
     Dosage: 50 MG, BID
     Route: 048
     Dates: start: 20090707, end: 20110628
  5. KADIAN [Concomitant]
     Dosage: 50 MG, BID
     Route: 048
     Dates: end: 20110901
  6. KADIAN [Concomitant]
     Dosage: 50 MG, BID
     Route: 048
     Dates: end: 20111103
  7. FOLIC ACID [Concomitant]
     Indication: ANAEMIA
     Dosage: 1 MG, QD
     Route: 048
     Dates: end: 20101118
  8. PHENERGAN [Concomitant]
     Indication: PROPHYLAXIS OF NAUSEA AND VOMITING
     Dosage: 1 DF, PRN
     Route: 048
     Dates: start: 20090311, end: 20110628
  9. PHENERGAN [Concomitant]
     Dosage: 1 DF, UNK
     Route: 048
     Dates: end: 20110901
  10. PHENERGAN [Concomitant]
     Dosage: 1 DF, PRN
     Route: 048
     Dates: end: 20111103
  11. HEPARIN [Concomitant]
     Indication: THROMBOSIS PROPHYLAXIS
     Dosage: 10000 IU, BID
     Route: 058
     Dates: start: 20090303, end: 20110628
  12. HEPARIN [Concomitant]
     Dosage: 10000 IU, BID
     Dates: end: 20110831
  13. HEPARIN [Concomitant]
     Dosage: 10000 U, BID
     Route: 058
     Dates: end: 20111103
  14. RESTORIL [Concomitant]
     Indication: INSOMNIA
     Dosage: 30 MG, QD
     Route: 048
     Dates: start: 2009, end: 20110831
  15. FLEXERIL [Concomitant]
     Indication: BACK PAIN
     Dosage: 10 MG, TID
     Dates: start: 20110220, end: 20111103
  16. DILAUDID [Concomitant]
     Indication: PAIN
     Dosage: 4 MG, QD
     Route: 048
     Dates: start: 2005
  17. DILAUDID [Concomitant]
     Dosage: 3 MG, Q3H
     Route: 042
     Dates: start: 20100923, end: 20101004
  18. DILAUDID [Concomitant]
     Dosage: 3 MG, Q3H
     Route: 042
     Dates: start: 20101214, end: 20101221
  19. DILAUDID [Concomitant]
     Dosage: 3 MG, Q3H
     Route: 042
     Dates: start: 20101230, end: 20110106
  20. DILAUDID [Concomitant]
     Dosage: 3 MG, Q3H
     Route: 042
     Dates: start: 20110121, end: 20110202
  21. DILAUDID [Concomitant]
     Dosage: 2 MG, Q3H
     Route: 042
     Dates: start: 20110324, end: 20110407
  22. DILAUDID [Concomitant]
     Dosage: 3 MG, Q3H
     Route: 042
     Dates: start: 20110414, end: 20110426
  23. DILAUDID [Concomitant]
     Dosage: 2 MG, Q3H
     Route: 042
     Dates: start: 20110517, end: 20110529
  24. DILAUDID [Concomitant]
     Dosage: 4 MG, QD
     Route: 048
     Dates: end: 20110628
  25. DILAUDID [Concomitant]
     Dosage: 10 MG, Q3H
     Route: 042
     Dates: start: 20110628, end: 20110705
  26. DILAUDID [Concomitant]
     Dosage: 4 MG, QD
     Dates: end: 20110901
  27. DILAUDID [Concomitant]
     Dosage: 4 MG, QD
     Route: 048
     Dates: end: 20111103
  28. DILAUDID [Concomitant]
     Dosage: 3 MG, Q3H
     Route: 042
  29. DILAUDID [Concomitant]
     Dosage: 2 MG, Q3H
     Route: 042
     Dates: start: 20120302, end: 20120407
  30. DILAUDID [Concomitant]
     Dosage: 0.1 MG/H, UNK
     Route: 042
  31. DILAUDID [Concomitant]
     Dosage: 0.1 MG/H, UNK
     Route: 042

REACTIONS (46)
  - Thoracic vertebral fracture [Fatal]
  - Back pain [Fatal]
  - Sickle cell anaemia with crisis [Fatal]
  - Muscle oedema [Unknown]
  - Haemoglobin decreased [Unknown]
  - Pneumonia [Recovered/Resolved]
  - Oxygen saturation decreased [Unknown]
  - Pyrexia [Recovered/Resolved]
  - Pulmonary hypertension [Not Recovered/Not Resolved]
  - Ejection fraction decreased [Unknown]
  - Dilatation ventricular [Unknown]
  - Dyspnoea [Unknown]
  - Painful respiration [Unknown]
  - Abdominal wall haematoma [Recovered/Resolved]
  - Arthralgia [Unknown]
  - Chest pain [Recovered/Resolved]
  - Bursitis [Recovering/Resolving]
  - Femur fracture [Not Recovered/Not Resolved]
  - Acute chest syndrome [Recovered/Resolved]
  - Pain in extremity [Unknown]
  - Pulmonary congestion [Unknown]
  - Bronchitis [Recovered/Resolved]
  - Cough [Unknown]
  - Flank pain [Recovered/Resolved]
  - Staphylococcal infection [Unknown]
  - Asthenia [Recovered/Resolved]
  - Nausea [Recovered/Resolved]
  - Joint effusion [Recovered/Resolved]
  - Atelectasis [Unknown]
  - Cardiomegaly [Unknown]
  - Peripheral artery thrombosis [Recovered/Resolved]
  - Atrioventricular block complete [Unknown]
  - Clostridium difficile colitis [Recovered/Resolved]
  - Frequent bowel movements [Unknown]
  - Spinal deformity [Not Recovered/Not Resolved]
  - Osteoporosis [Not Recovered/Not Resolved]
  - Diarrhoea [Recovered/Resolved]
  - Pleural effusion [Unknown]
  - Pulmonary embolism [Unknown]
  - Staphylococcal bacteraemia [Recovered/Resolved]
  - Tibia fracture [Recovered/Resolved]
  - Rash [Unknown]
  - Acne [Unknown]
  - Sinus tachycardia [Unknown]
  - Back injury [Not Recovered/Not Resolved]
  - Palpitations [Unknown]
